FAERS Safety Report 6790206-9 (Version None)
Quarter: 2010Q2

REPORT INFORMATION
  Report Type: 
  Country: None (occurrence: None)
  Receive Date: 20100624
  Receipt Date: 20100615
  Transmission Date: 20101027
  Serious: Yes (Hospitalization)
  Sender: FDA-Public Use
  Company Number: FR-ASTRAZENECA-2010SE28659

PATIENT
  Age: 71 Year
  Sex: Female

DRUGS (14)
  1. CRESTOR [Suspect]
     Indication: HYPERCHOLESTEROLAEMIA
     Route: 048
     Dates: end: 20100224
  2. AUGMENTIN '125' [Suspect]
     Indication: INFECTION
     Route: 048
     Dates: start: 20100223, end: 20100302
  3. XANAX [Suspect]
     Indication: ANXIETY
     Route: 048
     Dates: start: 20100210, end: 20100225
  4. LEXOMIL [Suspect]
     Indication: ANXIETY
     Route: 048
     Dates: start: 20100210, end: 20100304
  5. DOLIPRANE [Suspect]
     Indication: PAIN
     Route: 048
     Dates: start: 20100210, end: 20100304
  6. NEXIUM [Concomitant]
     Dates: start: 20100219
  7. TAREG [Concomitant]
  8. ZOLPIDEM [Concomitant]
  9. DEROXAT [Concomitant]
  10. AMLOR [Concomitant]
  11. LOVENOX [Concomitant]
     Dates: start: 20100210
  12. ZOPHREN [Concomitant]
     Dates: start: 20100210, end: 20100224
  13. TARDYFERON [Concomitant]
     Dates: start: 20100219
  14. DIFFU K [Concomitant]
     Dates: start: 20100225

REACTIONS (4)
  - FACE OEDEMA [None]
  - PRURITUS [None]
  - PYREXIA [None]
  - RASH MACULO-PAPULAR [None]
